FAERS Safety Report 13363975 (Version 1)
Quarter: 2017Q1

REPORT INFORMATION
  Report Type: Report from Study
  Country: VE (occurrence: VE)
  Receive Date: 20170323
  Receipt Date: 20170323
  Transmission Date: 20170429
  Serious: Yes (Other)
  Sender: FDA-Public Use
  Company Number: PHHY2017VE042588

PATIENT
  Age: 4 Year
  Sex: Female
  Weight: 18.5 kg

DRUGS (7)
  1. LORATADINA [Concomitant]
     Active Substance: LORATADINE
     Indication: SINUSITIS
     Dosage: 5 MG, QD
     Route: 065
  2. LORATADINA [Concomitant]
     Active Substance: LORATADINE
     Indication: PNEUMONIA
  3. DESLER [Concomitant]
     Indication: SINUSITIS
     Dosage: 5 MG, QD
     Route: 065
  4. TASIGNA [Suspect]
     Active Substance: NILOTINIB
     Indication: CHRONIC MYELOID LEUKAEMIA
     Dosage: 400 MG, QD
     Route: 048
     Dates: start: 20161229
  5. LORATADINA [Concomitant]
     Active Substance: LORATADINE
     Indication: RESPIRATORY DISORDER
  6. DESLER [Concomitant]
     Indication: PNEUMONIA
  7. DESLER [Concomitant]
     Indication: RESPIRATORY DISORDER

REACTIONS (3)
  - Amoebiasis [Recovering/Resolving]
  - Pyrexia [Recovering/Resolving]
  - Respiratory disorder [Recovering/Resolving]

NARRATIVE: CASE EVENT DATE: 201703
